FAERS Safety Report 24616184 (Version 2)
Quarter: 2024Q4

REPORT INFORMATION
  Report Type: Spontaneous
  Country: BR (occurrence: BR)
  Receive Date: 20241113
  Receipt Date: 20241125
  Transmission Date: 20250114
  Serious: Yes (Other)
  Sender: NOVO NORDISK
  Company Number: BR-NOVOPROD-1312790

PATIENT
  Age: 44 Year
  Sex: Female

DRUGS (1)
  1. WEGOVY [Suspect]
     Active Substance: SEMAGLUTIDE
     Indication: Product used for unknown indication
     Dosage: 0.5 MG
     Dates: start: 20241031, end: 2024

REACTIONS (8)
  - Loss of consciousness [Unknown]
  - Pruritus [Unknown]
  - Pain [Unknown]
  - Nausea [Unknown]
  - Vomiting [Unknown]
  - Headache [Unknown]
  - Suspected counterfeit product [Unknown]
  - Product packaging issue [Unknown]

NARRATIVE: CASE EVENT DATE: 20240101
